FAERS Safety Report 17883373 (Version 1)
Quarter: 2020Q2

REPORT INFORMATION
  Report Type: Other
  Country: DE (occurrence: DE)
  Receive Date: 20200611
  Receipt Date: 20200611
  Transmission Date: 20200714
  Serious: Yes (Congenital Anomaly, Other)
  Sender: FDA-Public Use
  Company Number: DE-LUPIN PHARMACEUTICALS INC.-2020-02753

PATIENT
  Age: 0 Day
  Sex: Male
  Weight: 3.52 kg

DRUGS (3)
  1. FOLIO [CYANOCOBALAMIN;FOLIC ACID;POTASSIUM IODIDE] [Concomitant]
     Indication: PROPHYLAXIS OF NEURAL TUBE DEFECT
     Dosage: 0.4 MILLIGRAM, QD
     Route: 048
  2. LAMOTRIGINE. [Suspect]
     Active Substance: LAMOTRIGINE
     Indication: EPILEPSY
     Dosage: 300 MILLIGRAM, QD (300 [MG/D (MAX.) ]/ EXPOSURE TIME: CONFLICTING STATEMENTS, BEGIN EITHER IN 4/2019
     Route: 064
     Dates: start: 20190415, end: 20200201
  3. L-THYROXINE [LEVOTHYROXINE] [Concomitant]
     Active Substance: LEVOTHYROXINE
     Indication: HYPOTHYROIDISM
     Dosage: 25 MICROGRAM, QD
     Route: 064
     Dates: start: 20190420, end: 20200201

REACTIONS (4)
  - Atrial septal defect [Unknown]
  - Myoclonus [Recovered/Resolved]
  - Congenital mitral valve incompetence [Recovering/Resolving]
  - Foetal exposure during pregnancy [Unknown]

NARRATIVE: CASE EVENT DATE: 20200201
